FAERS Safety Report 15557442 (Version 2)
Quarter: 2018Q4

REPORT INFORMATION
  Report Type: Spontaneous
  Country: FR (occurrence: FR)
  Receive Date: 20181026
  Receipt Date: 20181101
  Transmission Date: 20190205
  Serious: Yes (Hospitalization)
  Sender: FDA-Public Use
  Company Number: PHHY2018FR136378

PATIENT
  Age: 73 Year
  Sex: Female

DRUGS (6)
  1. LERCAN [Interacting]
     Active Substance: LERCANIDIPINE
     Indication: HYPERTENSION
     Dosage: 10 MG, QD
     Route: 048
     Dates: end: 20180819
  2. ENDOXAN [Concomitant]
     Active Substance: CYCLOPHOSPHAMIDE
     Indication: PLASMA CELL MYELOMA
     Dosage: 150 MG, 1 CYCLICAL J1 J8 J15
     Route: 048
     Dates: start: 20180627
  3. EUPRESSYL [Interacting]
     Active Substance: URAPIDIL
     Indication: HYPERTENSION
     Dosage: 120 MG, QD
     Route: 048
     Dates: end: 20180819
  4. NEOFORDEX [Concomitant]
     Active Substance: DEXAMETHASONE ACETATE
     Indication: PLASMA CELL MYELOMA
     Dosage: 160 MG, 1 CYCLICAL, J1 J8 J15 J22
     Route: 048
     Dates: start: 20180627
  5. COTAREG [Suspect]
     Active Substance: HYDROCHLOROTHIAZIDE\VALSARTAN
     Indication: HYPERTENSION
     Dosage: 1 ?G/L, QD
     Route: 048
     Dates: end: 20180707
  6. IMNOVID [Concomitant]
     Active Substance: POMALIDOMIDE
     Indication: PLASMA CELL MYELOMA
     Dosage: 84 MG, 1 CYCLICAL, 1 TOUS LES JOURS 21 J/28 J
     Route: 048
     Dates: start: 20180627

REACTIONS (3)
  - Bradycardia [Recovered/Resolved]
  - Malaise [Recovered/Resolved]
  - Hypotension [Recovered/Resolved]

NARRATIVE: CASE EVENT DATE: 20180707
